FAERS Safety Report 19201474 (Version 1)
Quarter: 2021Q2

REPORT INFORMATION
  Report Type: Spontaneous
  Country: CN (occurrence: CN)
  Receive Date: 20210430
  Receipt Date: 20210430
  Transmission Date: 20210717
  Serious: Yes (Hospitalization, Other)
  Sender: FDA-Public Use
  Company Number: CN-PFIZER INC-2021427362

PATIENT
  Age: 13 Year
  Sex: Female
  Weight: 43 kg

DRUGS (6)
  1. VORICONAZOLE. [Suspect]
     Active Substance: VORICONAZOLE
     Indication: ANTI-INFECTIVE THERAPY
     Dosage: UNK
     Dates: start: 20200417, end: 20200522
  2. LINEZOLID. [Suspect]
     Active Substance: LINEZOLID
     Indication: ANTI-INFECTIVE THERAPY
     Dosage: UNK
     Dates: start: 20200417, end: 20200525
  3. COMPOUND SULFAMETHOXAZOLE [SULFAMETHOXAZOLE] [Suspect]
     Active Substance: SULFAMETHOXAZOLE
     Indication: ANTI-INFECTIVE THERAPY
     Dosage: UNK
     Dates: start: 20200417, end: 20200518
  4. AZATHIOPRINE. [Concomitant]
     Active Substance: AZATHIOPRINE
     Dosage: UNK
     Dates: start: 20200417
  5. PREDNISOLONE ACETATE. [Concomitant]
     Active Substance: PREDNISOLONE ACETATE
     Dosage: UNK
     Dates: start: 20200417
  6. PYRIDOSTIGMINE [Concomitant]
     Active Substance: PYRIDOSTIGMINE
     Dosage: UNK
     Dates: start: 20200417

REACTIONS (2)
  - Pancytopenia [Unknown]
  - Myelosuppression [Unknown]
